FAERS Safety Report 7335956-0 (Version None)
Quarter: 2011Q1

REPORT INFORMATION
  Report Type: 
  Country: None (occurrence: None)
  Receive Date: 20110301
  Receipt Date: 20110301
  Transmission Date: 20110831
  Serious: Yes (Hospitalization)
  Sender: FDA-Public Use
  Company Number: None

PATIENT
  Age: 84 Year
  Sex: Male
  Weight: 72.5 kg

DRUGS (2)
  1. METHOTREXATE [Suspect]
     Indication: RHEUMATOID ARTHRITIS
     Dosage: 15 MG QWEEK PO
     Route: 048
     Dates: start: 19801201, end: 20110103
  2. CIPROFLOXACIN [Suspect]
     Indication: PROSTATITIS
     Dosage: 250 MG BID PO
     Route: 048
     Dates: start: 20101202, end: 20101211

REACTIONS (4)
  - PANCYTOPENIA [None]
  - ANAEMIA [None]
  - HAEMORRHAGE [None]
  - PURPURA [None]
